FAERS Safety Report 19548247 (Version 27)
Quarter: 2022Q1

REPORT INFORMATION
  Report Type: Spontaneous
  Country: PL (occurrence: PL)
  Receive Date: 20210714
  Receipt Date: 20220302
  Transmission Date: 20220423
  Serious: Yes (Life-Threatening, Hospitalization)
  Sender: FDA-Public Use
  Company Number: PL-CELGENE-POL-20210702386

PATIENT
  Age: 0 Year
  Sex: Female
  Weight: 52 kg

DRUGS (16)
  1. AZACITIDINE [Suspect]
     Active Substance: AZACITIDINE
     Indication: Acute myeloid leukaemia
     Route: 058
     Dates: start: 20210531
  2. VENETOCLAX [Suspect]
     Active Substance: VENETOCLAX
     Indication: Acute myeloid leukaemia
     Route: 048
     Dates: start: 20210531
  3. VENETOCLAX [Suspect]
     Active Substance: VENETOCLAX
     Route: 048
     Dates: start: 20210601
  4. VENETOCLAX [Suspect]
     Active Substance: VENETOCLAX
     Route: 048
     Dates: start: 20210602
  5. PEVONEDISTAT [Suspect]
     Active Substance: PEVONEDISTAT
     Indication: Acute myeloid leukaemia
     Route: 041
     Dates: start: 20210531, end: 20210531
  6. PEVONEDISTAT [Suspect]
     Active Substance: PEVONEDISTAT
     Route: 041
     Dates: start: 20210628
  7. OPIPRAMOL [Concomitant]
     Active Substance: OPIPRAMOL
     Indication: Anxiety disorder
     Route: 065
  8. ALLOPURINOL [Concomitant]
     Active Substance: ALLOPURINOL
     Indication: Blood uric acid increased
     Route: 065
     Dates: start: 202102
  9. PREGABALIN [Concomitant]
     Active Substance: PREGABALIN
     Indication: Product used for unknown indication
     Route: 065
  10. PREGABALIN [Concomitant]
     Active Substance: PREGABALIN
     Indication: Neutrophil count decreased
  11. QUETIAPINE FUMARATE [Concomitant]
     Active Substance: QUETIAPINE FUMARATE
     Indication: Affective disorder
     Route: 065
  12. QUETIAPINE FUMARATE [Concomitant]
     Active Substance: QUETIAPINE FUMARATE
     Indication: Neutrophil count decreased
  13. TIANEPTINE [Concomitant]
     Active Substance: TIANEPTINE
     Indication: Affective disorder
     Route: 065
  14. TIANEPTINE [Concomitant]
     Active Substance: TIANEPTINE
     Indication: Neutrophil count decreased
  15. CEFUROXIME SODIUM [Concomitant]
     Active Substance: CEFUROXIME SODIUM
     Indication: Urinary tract infection
     Route: 065
     Dates: start: 20210530, end: 20210705
  16. CEFUROXIME SODIUM [Concomitant]
     Active Substance: CEFUROXIME SODIUM
     Indication: Neutrophil count decreased

REACTIONS (5)
  - Thrombocytopenia [Recovered/Resolved]
  - Thrombocytopenia [Recovered/Resolved]
  - Thrombocytopenia [Recovered/Resolved]
  - Febrile neutropenia [Recovered/Resolved]
  - Thrombocytopenia [Recovered/Resolved]

NARRATIVE: CASE EVENT DATE: 20210708
